FAERS Safety Report 13693364 (Version 1)
Quarter: 2017Q2

REPORT INFORMATION
  Report Type: Spontaneous
  Country: US (occurrence: US)
  Receive Date: 20170626
  Receipt Date: 20170626
  Transmission Date: 20170830
  Serious: Yes (Hospitalization, Disabling, Other)
  Sender: FDA-Public Use
  Company Number: None

PATIENT
  Age: 42 Year
  Sex: Female
  Weight: 50.4 kg

DRUGS (2)
  1. XANAX [Suspect]
     Active Substance: ALPRAZOLAM
     Indication: ANXIETY
     Dosage: ?          OTHER STRENGTH:MG;?
     Route: 048
     Dates: start: 20020101, end: 20160626
  2. VALIUM [Concomitant]
     Active Substance: DIAZEPAM

REACTIONS (18)
  - Dysstasia [None]
  - Anxiety [None]
  - Poor quality sleep [None]
  - Autonomic nervous system imbalance [None]
  - Crying [None]
  - Quality of life decreased [None]
  - Pain [None]
  - Weight decreased [None]
  - Loss of employment [None]
  - Postural orthostatic tachycardia syndrome [None]
  - Abasia [None]
  - Malaise [None]
  - Food allergy [None]
  - Suicidal ideation [None]
  - Economic problem [None]
  - Drug use disorder [None]
  - Balance disorder [None]
  - Vertigo [None]

NARRATIVE: CASE EVENT DATE: 20101001
